FAERS Safety Report 9708310 (Version 1)
Quarter: 2013Q4

REPORT INFORMATION
  Report Type: Spontaneous
  Country: GB (occurrence: GB)
  Receive Date: 20131125
  Receipt Date: 20131125
  Transmission Date: 20140711
  Serious: Yes (Hospitalization)
  Sender: FDA-Public Use
  Company Number: GB-PFIZER INC-2013332454

PATIENT
  Age: 81 Year
  Sex: Female
  Weight: 95.6 kg

DRUGS (8)
  1. ATORVASTATIN CALCIUM [Suspect]
     Indication: MYOCARDIAL INFARCTION
     Dosage: 80 MG, UNK
     Route: 048
     Dates: end: 20131103
  2. LEVOTHYROXINE [Concomitant]
     Dosage: UNK
  3. TICAGRELOR [Concomitant]
     Dosage: UNK
  4. ASPIRIN [Concomitant]
     Dosage: UNK
  5. RAMIPRIL [Concomitant]
     Dosage: UNK
  6. BISOPROLOL [Concomitant]
     Dosage: UNK
  7. HYDROCORTISONE [Concomitant]
     Dosage: UNK
  8. GTN [Concomitant]
     Dosage: UNK

REACTIONS (2)
  - Myositis [Recovering/Resolving]
  - Asthenia [Unknown]
